FAERS Safety Report 8308517-4 (Version None)
Quarter: 2012Q2

REPORT INFORMATION
  Report Type: 
  Country: None (occurrence: None)
  Receive Date: 20120419
  Receipt Date: 20120405
  Transmission Date: 20120825
  Serious: Yes (Life-Threatening, Hospitalization)
  Sender: FDA-Public Use
  Company Number: AUR-APL-2012-01770

PATIENT
  Age: 81 Year
  Sex: Male

DRUGS (6)
  1. NOVONORM (REBAGLINIDE) [Concomitant]
  2. METFORMIN HCL [Suspect]
     Indication: DIABETES MELLITUS
     Dosage: (2.55 GM, 1 D), ORAL
     Route: 048
     Dates: end: 20111024
  3. ASPIRIN [Suspect]
     Indication: PROPHYLAXIS
     Dosage: (150 MG, 1 D), ORAL
     Route: 048
     Dates: end: 20111024
  4. OMEPRAZOLE [Concomitant]
  5. OLMESARTAN MEDOXOMIL [Suspect]
     Indication: HYPERTENSION
     Dosage: (20 MG, 1 D), ORAL
     Route: 048
     Dates: start: 20090401, end: 20111024
  6. SIMVASTATIN [Concomitant]

REACTIONS (9)
  - DRUG INTERACTION [None]
  - ESCHERICHIA TEST POSITIVE [None]
  - COGNITIVE DISORDER [None]
  - DEHYDRATION [None]
  - BLOOD POTASSIUM INCREASED [None]
  - RENAL FAILURE ACUTE [None]
  - DIARRHOEA [None]
  - PYREXIA [None]
  - HAEMODIALYSIS [None]
